FAERS Safety Report 11330666 (Version 1)
Quarter: 2015Q3

REPORT INFORMATION
  Report Type: Spontaneous
  Country: US (occurrence: None)
  Receive Date: 20150731
  Receipt Date: 20150731
  Transmission Date: 20151125
  Serious: Yes (Hospitalization)
  Sender: FDA-Public Use
  Company Number: None

PATIENT
  Age: 79 Year
  Sex: Female

DRUGS (1)
  1. FORTEO [Suspect]
     Active Substance: TERIPARATIDE
     Route: 058
     Dates: start: 20150429, end: 20150701

REACTIONS (8)
  - Blood count abnormal [None]
  - Nausea [None]
  - Diarrhoea [None]
  - Depression [None]
  - Headache [None]
  - Balance disorder [None]
  - Asthenia [None]
  - Pain [None]

NARRATIVE: CASE EVENT DATE: 20150701
